FAERS Safety Report 7272533-4 (Version None)
Quarter: 2011Q1

REPORT INFORMATION
  Report Type: 
  Country: None (occurrence: None)
  Receive Date: 20110126
  Receipt Date: 20110111
  Transmission Date: 20110831
  Serious: Yes (Life-Threatening, Hospitalization, Other)
  Sender: FDA-Public Use
  Company Number: AUR-APL-2011-00207

PATIENT
  Age: 34 Year
  Sex: Male

DRUGS (7)
  1. DIAZEPAM [Suspect]
     Dosage: 140MG
  2. DOXAZOSIN MESYLATE [Suspect]
  3. TEMAZEPAM [Suspect]
     Dosage: 120MG
  4. PERINDOPRIL ERBUMINE [Suspect]
  5. CITALOPRAM HYDROBROMIDE [Suspect]
     Dosage: 240MG
  6. AMLODIPINE [Suspect]
  7. ACETAMINOPHEN W/ CODEINE [Suspect]

REACTIONS (11)
  - HYPOTENSION [None]
  - BLOOD POTASSIUM DECREASED [None]
  - METABOLIC ACIDOSIS [None]
  - TOXICITY TO VARIOUS AGENTS [None]
  - AGGRESSION [None]
  - MULTIPLE DRUG OVERDOSE INTENTIONAL [None]
  - HEART RATE INCREASED [None]
  - HYPOXIA [None]
  - BLOOD CREATININE INCREASED [None]
  - DIALYSIS [None]
  - LOSS OF CONSCIOUSNESS [None]
